FAERS Safety Report 22216733 (Version 3)
Quarter: 2023Q2

REPORT INFORMATION
  Report Type: Report from Study
  Country: CN (occurrence: CN)
  Receive Date: 20230417
  Receipt Date: 20230515
  Transmission Date: 20230722
  Serious: Yes (Hospitalization)
  Sender: FDA-Public Use
  Company Number: CN-BEIGENE AUS PTY LTD-BGN-2023-002819

PATIENT
  Age: 79 Year
  Sex: Male
  Weight: 60 kg

DRUGS (25)
  1. PACLITAXEL [Suspect]
     Active Substance: PACLITAXEL
     Indication: Non-small cell lung cancer metastatic
     Dosage: 165 MG
     Route: 042
     Dates: start: 20221104
  2. PACLITAXEL [Suspect]
     Active Substance: PACLITAXEL
     Dosage: 175 MG
     Route: 042
     Dates: start: 20230307, end: 20230307
  3. INVESTIGATIONAL PRODUCT [Suspect]
     Active Substance: INVESTIGATIONAL PRODUCT
     Indication: Non-small cell lung cancer metastatic
     Dosage: CODE NOT BROKEN
     Route: 042
     Dates: start: 20221104
  4. OCIPERLIMAB [Suspect]
     Active Substance: OCIPERLIMAB
     Indication: Non-small cell lung cancer metastatic
     Dosage: CODE NOT BROKEN
     Route: 042
     Dates: start: 20221104
  5. PLACEBO [Suspect]
     Active Substance: UNSPECIFIED INGREDIENT
     Indication: Non-small cell lung cancer metastatic
     Dosage: CODE NOT BROKEN
     Route: 042
     Dates: start: 20221104
  6. INVESTIGATIONAL PRODUCT [Suspect]
     Active Substance: INVESTIGATIONAL PRODUCT
     Dosage: CODE NOT BROKEN
     Route: 042
     Dates: start: 20230307, end: 20230307
  7. OCIPERLIMAB [Suspect]
     Active Substance: OCIPERLIMAB
     Dosage: CODE NOT BROKEN
     Route: 042
     Dates: start: 20230307, end: 20230307
  8. PLACEBO [Suspect]
     Active Substance: UNSPECIFIED INGREDIENT
     Dosage: CODE NOT BROKEN
     Route: 042
     Dates: start: 20230307, end: 20230307
  9. TISLELIZUMAB [Suspect]
     Active Substance: TISLELIZUMAB
     Indication: Non-small cell lung cancer metastatic
     Dosage: 200 MG
     Route: 042
     Dates: start: 20221104
  10. TISLELIZUMAB [Suspect]
     Active Substance: TISLELIZUMAB
     Dosage: 200 MG
     Route: 042
     Dates: start: 20230307, end: 20230307
  11. INDAPAMIDE [Concomitant]
     Active Substance: INDAPAMIDE
     Indication: Hypertension
     Dosage: UNK
     Route: 065
     Dates: start: 2012
  12. OMEPRAZOLE SODIUM [Concomitant]
     Active Substance: OMEPRAZOLE SODIUM
     Indication: Prophylaxis
     Dosage: UNK
     Route: 065
     Dates: start: 20230306, end: 20230308
  13. OMEPRAZOLE SODIUM [Concomitant]
     Active Substance: OMEPRAZOLE SODIUM
     Dosage: UNK, INJECTION
     Route: 065
     Dates: start: 20230406, end: 20230413
  14. TIOPRONIN [Concomitant]
     Active Substance: TIOPRONIN
     Indication: Hepatobiliary disorder prophylaxis
     Dosage: UNK
     Route: 065
     Dates: start: 20230306, end: 20230308
  15. TIOPRONIN [Concomitant]
     Active Substance: TIOPRONIN
     Indication: Alanine aminotransferase increased
     Dosage: UNK, INJECTION
     Route: 065
     Dates: start: 20230406, end: 20230413
  16. TIOPRONIN [Concomitant]
     Active Substance: TIOPRONIN
     Indication: Aspartate aminotransferase increased
  17. LACTULOSE [Concomitant]
     Active Substance: LACTULOSE
     Indication: Constipation
     Dosage: UNK
     Route: 065
     Dates: start: 20230307, end: 20230314
  18. METHYLPREDNISOLONE SODIUM SUCCINATE [Concomitant]
     Active Substance: METHYLPREDNISOLONE SODIUM SUCCINATE
     Indication: Prophylaxis of nausea and vomiting
     Dosage: UNK
     Route: 065
     Dates: start: 20230307, end: 20230307
  19. PALONOSETRON HYDROCHLORIDE [Concomitant]
     Active Substance: PALONOSETRON HYDROCHLORIDE
     Indication: Prophylaxis of nausea and vomiting
     Dosage: UNK
     Route: 065
     Dates: start: 20230307, end: 20230307
  20. BUDESONIDE [Concomitant]
     Active Substance: BUDESONIDE
     Indication: Productive cough
     Dosage: UNK (AEROSOL)
     Route: 065
     Dates: start: 20230406, end: 20230407
  21. ACETYLCYSTEINE [Concomitant]
     Active Substance: ACETYLCYSTEINE
     Indication: Productive cough
     Dosage: UNK
     Route: 065
     Dates: start: 20230406, end: 20230407
  22. POTASSIUM CHLORIDE [Concomitant]
     Active Substance: POTASSIUM CHLORIDE
     Indication: Hypokalaemia
     Dosage: UNK, INJECTION
     Route: 065
     Dates: start: 20230406, end: 20230413
  23. POTASSIUM CHLORIDE [Concomitant]
     Active Substance: POTASSIUM CHLORIDE
     Dosage: UNK, SUSTAINED-RELEASE TABLETS
     Route: 065
     Dates: start: 20230411
  24. VITAMIN B6 [Concomitant]
     Active Substance: PYRIDOXINE HYDROCHLORIDE
     Indication: Supplementation therapy
     Dosage: UNK
     Route: 065
     Dates: start: 20230406, end: 20230413
  25. VITAMIN C [Concomitant]
     Active Substance: ASCORBIC ACID
     Indication: Supplementation therapy
     Dosage: UNK
     Route: 065
     Dates: start: 20230406, end: 20230413

REACTIONS (1)
  - Febrile infection [Recovered/Resolved]

NARRATIVE: CASE EVENT DATE: 20230406
